FAERS Safety Report 7034682-5 (Version None)
Quarter: 2010Q4

REPORT INFORMATION
  Report Type: 
  Country: None (occurrence: None)
  Receive Date: 20101008
  Receipt Date: 20100927
  Transmission Date: 20110411
  Serious: Yes (Other)
  Sender: FDA-Public Use
  Company Number: PHHY2010DE65150

PATIENT

DRUGS (1)
  1. ZOMETA [Suspect]

REACTIONS (2)
  - COLLAGEN DISORDER [None]
  - PERFORATED ULCER [None]
